FAERS Safety Report 9256242 (Version 1)
Quarter: 2013Q2

REPORT INFORMATION
  Report Type: Spontaneous
  Country: US (occurrence: US)
  Receive Date: 20130425
  Receipt Date: 20130425
  Transmission Date: 20140414
  Serious: No
  Sender: FDA-Public Use
  Company Number: US-AMGEN-USASP2012065128

PATIENT
  Age: 74 Year
  Sex: Male
  Weight: 82.99 kg

DRUGS (2)
  1. NEULASTA [Suspect]
     Indication: HEAD AND NECK CANCER
     Dosage: 6 MG, ONE TIME DOSE
     Route: 058
     Dates: start: 20121005
  2. FLUORO URACIL [Concomitant]
     Indication: HEAD AND NECK CANCER
     Dosage: UNK

REACTIONS (1)
  - Inappropriate schedule of drug administration [Unknown]
